FAERS Safety Report 21454046 (Version 1)
Quarter: 2022Q4

REPORT INFORMATION
  Report Type: Report from Study
  Country: US (occurrence: US)
  Receive Date: 20221013
  Receipt Date: 20221013
  Transmission Date: 20230113
  Serious: Yes (Hospitalization, Other)
  Sender: FDA-Public Use
  Company Number: US-BRISTOL-MYERS SQUIBB COMPANY-2022-104307

PATIENT
  Age: 69 Year
  Sex: Male
  Weight: 87.543 kg

DRUGS (11)
  1. REVLIMID [Suspect]
     Active Substance: LENALIDOMIDE
     Indication: Plasma cell myeloma
     Dosage: FOR 14 DAYS, THEN 14 DAYS OFF
     Route: 048
     Dates: start: 20201002
  2. MIRALAX [Concomitant]
     Active Substance: POLYETHYLENE GLYCOL 3350
  3. ASPIRIN [Concomitant]
     Active Substance: ASPIRIN
  4. GABAPENTIN [Concomitant]
     Active Substance: GABAPENTIN
  5. GINKGO [Concomitant]
     Active Substance: GINKGO
  6. MAGNESIUM CITRATE [Concomitant]
     Active Substance: MAGNESIUM CITRATE
  7. ONDANSETRON [Concomitant]
     Active Substance: ONDANSETRON
  8. OXYCODONE [Concomitant]
     Active Substance: OXYCODONE
  9. TYLENOL [Concomitant]
     Active Substance: ACETAMINOPHEN
  10. VITAMIN B12 [Concomitant]
     Active Substance: CYANOCOBALAMIN
  11. VITAMIN D3 [Concomitant]
     Active Substance: CHOLECALCIFEROL

REACTIONS (7)
  - Confusional state [Unknown]
  - Gait disturbance [Unknown]
  - Fracture [Unknown]
  - Constipation [Unknown]
  - Muscle spasms [Unknown]
  - Off label use [Unknown]
  - Drug ineffective [Unknown]
